FAERS Safety Report 7399511-9 (Version None)
Quarter: 2011Q1

REPORT INFORMATION
  Report Type: 
  Country: None (occurrence: None)
  Receive Date: 20110328
  Receipt Date: 20110321
  Transmission Date: 20110831
  Serious: Yes (Hospitalization)
  Sender: FDA-Public Use
  Company Number: 2011SP012854

PATIENT
  Age: 33 Year
  Sex: Female

DRUGS (6)
  1. CELESTENE (BETAMIETHASONE) (BETAMETHASONE /00008501/) [Suspect]
     Indication: RHINITIS
     Dosage: 4 MG;ONCCE;PO
     Route: 048
     Dates: start: 20100902, end: 20100902
  2. CELESTENE (BETAMIETHASONE) (BETAMETHASONE /00008501/) [Suspect]
     Indication: PHARYNGITIS
     Dosage: 4 MG;ONCCE;PO
     Route: 048
     Dates: start: 20100902, end: 20100902
  3. CELESTENE (BETAMIETHASONE) (BETAMETHASONE /00008501/) [Suspect]
     Indication: EAR INFECTION
     Dosage: 4 MG;ONCCE;PO
     Route: 048
     Dates: start: 20100902, end: 20100902
  4. MOXIFLOXACIN HYDROCHLORIDE [Suspect]
     Indication: PHARYNGITIS
     Dosage: 400 MG;ONCE;PO
     Route: 048
     Dates: start: 20100902, end: 20100902
  5. MOXIFLOXACIN HYDROCHLORIDE [Suspect]
     Indication: RHINITIS
     Dosage: 400 MG;ONCE;PO
     Route: 048
     Dates: start: 20100902, end: 20100902
  6. MOXIFLOXACIN HYDROCHLORIDE [Suspect]
     Indication: EAR INFECTION
     Dosage: 400 MG;ONCE;PO
     Route: 048
     Dates: start: 20100902, end: 20100902

REACTIONS (1)
  - ANAPHYLACTIC REACTION [None]
